FAERS Safety Report 9563969 (Version 1)
Quarter: 2013Q3

REPORT INFORMATION
  Report Type: Spontaneous
  Country: US (occurrence: US)
  Receive Date: 20130928
  Receipt Date: 20130928
  Transmission Date: 20140515
  Serious: No
  Sender: FDA-Public Use
  Company Number: US-BAYER-2013-117413

PATIENT
  Age: 55 Year
  Sex: Male

DRUGS (7)
  1. BETASERON [Suspect]
     Indication: MULTIPLE SCLEROSIS
     Dosage: 0.25 MG, QOD
     Route: 058
  2. SIMVASTATIN [Concomitant]
     Dosage: 40 MG, UNK
  3. LANSOPRAZOLE [Concomitant]
     Dosage: 3 MG/ML, UNK
  4. HYDROCHLOROTHIAZIDE [Concomitant]
     Dosage: 50 MG, UNK
  5. CITALOPRAM [Concomitant]
     Dosage: 20 MG, UNK
  6. VITAMIN D NOS [Concomitant]
     Dosage: 2000 IU, UNK
  7. EXFORGE HCT [Concomitant]

REACTIONS (1)
  - Injection site pain [Unknown]
